FAERS Safety Report 11312609 (Version 1)
Quarter: 2015Q3

REPORT INFORMATION
  Report Type: Spontaneous
  Country: US (occurrence: None)
  Receive Date: 20150724
  Receipt Date: 20150724
  Transmission Date: 20151125
  Serious: Yes (Hospitalization)
  Sender: FDA-Public Use
  Company Number: None

PATIENT
  Age: 68 Year
  Sex: Female
  Weight: 85.73 kg

DRUGS (10)
  1. VANCOMYCIN [Suspect]
     Active Substance: VANCOMYCIN
     Indication: CLOSTRIDIUM DIFFICILE INFECTION
     Dosage: 1TSP4XDAY FOR 10 DAYS,1TSP 2XA
     Route: 048
  2. ALLUPURINOL [Concomitant]
  3. CALCITROL [Concomitant]
     Active Substance: CALCITRIOL
  4. IRON [Concomitant]
     Active Substance: IRON
  5. TACROLIMUS. [Concomitant]
     Active Substance: TACROLIMUS
  6. GLIMEPIRISE [Concomitant]
  7. BACTRIM LEVIEMIR [Concomitant]
  8. VITAMIN C [Concomitant]
     Active Substance: ASCORBIC ACID
  9. LISINOPRIL. [Concomitant]
     Active Substance: LISINOPRIL
  10. VITAMIN D [Concomitant]
     Active Substance: CHOLECALCIFEROL

REACTIONS (1)
  - Hypoacusis [None]
